FAERS Safety Report 23975009 (Version 1)
Quarter: 2024Q2

REPORT INFORMATION
  Report Type: Spontaneous
  Country: GB (occurrence: GB)
  Receive Date: 20240614
  Receipt Date: 20240614
  Transmission Date: 20240716
  Serious: Yes (Other)
  Sender: FDA-Public Use
  Company Number: GB-CELLTRION INC.-2024GB013840

PATIENT

DRUGS (1)
  1. YUFLYMA [Suspect]
     Active Substance: ADALIMUMAB-AATY
     Indication: Hidradenitis
     Dosage: YUFLYMA 40MG FOR INJECTION PEN PK2
     Route: 058
     Dates: start: 202312

REACTIONS (2)
  - Renal injury [Unknown]
  - Therapy cessation [Unknown]
